FAERS Safety Report 5328328-1 (Version None)
Quarter: 2007Q2

REPORT INFORMATION
  Report Type: 
  Country: None (occurrence: None)
  Receive Date: 20070518
  Receipt Date: 20070508
  Transmission Date: 20071010
  Serious: Yes (Other)
  Sender: FDA-Public Use
  Company Number: JP-JNJFOC-20070503129

PATIENT
  Age: 60 Year
  Sex: Male

DRUGS (10)
  1. IMPROMEN [Suspect]
     Indication: SCHIZOPHRENIA
     Route: 048
  2. LINTON [Suspect]
     Indication: DRUG USE FOR UNKNOWN INDICATION
     Route: 048
  3. CONTOMIN [Suspect]
     Indication: DRUG USE FOR UNKNOWN INDICATION
     Route: 048
  4. DORAL [Suspect]
     Indication: DRUG USE FOR UNKNOWN INDICATION
     Route: 048
  5. TELESMIN [Suspect]
     Indication: DRUG USE FOR UNKNOWN INDICATION
     Route: 048
  6. BIPERIDEN HYDROCHLORIDE TAB [Concomitant]
     Route: 048
  7. AMOBAN [Concomitant]
     Route: 048
  8. SILECE [Concomitant]
     Route: 048
  9. THEOLONG [Concomitant]
     Route: 048
  10. ALOSENN [Concomitant]
     Route: 048

REACTIONS (1)
  - IRITIS [None]
